FAERS Safety Report 19075690 (Version 1)
Quarter: 2021Q1

REPORT INFORMATION
  Report Type: Spontaneous
  Country: CA (occurrence: CA)
  Receive Date: 20210330
  Receipt Date: 20210330
  Transmission Date: 20210420
  Serious: Yes (Life-Threatening, Other)
  Sender: FDA-Public Use
  Company Number: CA-SA-2020SA069565

PATIENT
  Age: 23 Year
  Sex: Male

DRUGS (20)
  1. DOCETAXEL. [Suspect]
     Active Substance: DOCETAXEL
     Indication: NEOPLASM RECURRENCE
     Dosage: UNK
     Route: 042
     Dates: start: 201606
  2. CYCLOPHOSPHAMIDE. [Suspect]
     Active Substance: CYCLOPHOSPHAMIDE
     Indication: UNDIFFERENTIATED SARCOMA
     Dosage: UNK
     Dates: start: 201901
  3. ETOPOSIDE. [Suspect]
     Active Substance: ETOPOSIDE
     Indication: UNDIFFERENTIATED SARCOMA
     Dosage: UNK
     Dates: start: 20130408, end: 201309
  4. TOPOTECAN [Suspect]
     Active Substance: TOPOTECAN HYDROCHLORIDE
     Indication: METASTASES TO PANCREAS
  5. GEMCITABINE HYDROCHLORIDE. [Suspect]
     Active Substance: GEMCITABINE HYDROCHLORIDE
     Indication: NEOPLASM RECURRENCE
     Dosage: 50 MG
     Dates: start: 201606
  6. CYCLOPHOSPHAMIDE. [Suspect]
     Active Substance: CYCLOPHOSPHAMIDE
     Indication: METASTASES TO PANCREAS
     Dosage: SOLUTION INTRAVENOUS
     Route: 042
  7. CYCLOPHOSPHAMIDE. [Suspect]
     Active Substance: CYCLOPHOSPHAMIDE
     Indication: UNDIFFERENTIATED SARCOMA
     Dosage: UNK
     Route: 048
     Dates: start: 201612
  8. CYCLOPHOSPHAMIDE. [Suspect]
     Active Substance: CYCLOPHOSPHAMIDE
     Indication: METASTASES TO PANCREAS
  9. IFOSFAMIDE. [Suspect]
     Active Substance: IFOSFAMIDE
     Indication: METASTASES TO PANCREAS
  10. OLARATUMAB [Suspect]
     Active Substance: OLARATUMAB
     Indication: UNDIFFERENTIATED SARCOMA
     Dosage: UNK
     Dates: start: 2018
  11. OLARATUMAB [Suspect]
     Active Substance: OLARATUMAB
     Indication: METASTASES TO PANCREAS
  12. TOPOTECAN [Suspect]
     Active Substance: TOPOTECAN HYDROCHLORIDE
     Indication: UNDIFFERENTIATED SARCOMA
     Dosage: UNK
     Dates: start: 201901
  13. PAZOPANIB [Suspect]
     Active Substance: PAZOPANIB
     Indication: UNDIFFERENTIATED SARCOMA
  14. ETOPOSIDE. [Suspect]
     Active Substance: ETOPOSIDE
     Indication: METASTASES TO PANCREAS
  15. IFOSFAMIDE. [Suspect]
     Active Substance: IFOSFAMIDE
     Indication: UNDIFFERENTIATED SARCOMA
     Dosage: UNK
     Route: 042
     Dates: start: 20130408, end: 201309
  16. VINCRISTINE SULFATE. [Suspect]
     Active Substance: VINCRISTINE SULFATE
     Indication: UNDIFFERENTIATED SARCOMA
  17. PAZOPANIB [Suspect]
     Active Substance: PAZOPANIB
     Indication: METASTASES TO PANCREAS
     Dosage: UNK
     Route: 065
     Dates: start: 201805
  18. DOXORUBICIN [Suspect]
     Active Substance: DOXORUBICIN
     Indication: METASTASES TO PANCREAS
  19. DOXORUBICIN [Suspect]
     Active Substance: DOXORUBICIN
     Indication: UNDIFFERENTIATED SARCOMA
     Dosage: SOLUTION INTRAVENOUS
     Route: 042
  20. VINCRISTINE SULFATE. [Suspect]
     Active Substance: VINCRISTINE SULFATE
     Indication: METASTASES TO PANCREAS
     Dosage: UNK
     Dates: start: 20130408, end: 201309

REACTIONS (11)
  - Metastases to liver [Unknown]
  - Bacteraemia [Unknown]
  - Metastases to lymph nodes [Unknown]
  - Neoplasm progression [Unknown]
  - Febrile neutropenia [Unknown]
  - Toxicity to various agents [Unknown]
  - Drug ineffective [Unknown]
  - Neoplasm progression [Unknown]
  - Neoplasm recurrence [Unknown]
  - Toxicity to various agents [Unknown]
  - Therapy non-responder [Unknown]

NARRATIVE: CASE EVENT DATE: 201606
